FAERS Safety Report 7539822-7 (Version None)
Quarter: 2011Q2

REPORT INFORMATION
  Report Type: 
  Country: None (occurrence: None)
  Receive Date: 20110610
  Receipt Date: 20110607
  Transmission Date: 20111010
  Serious: Yes (Death)
  Sender: FDA-Public Use
  Company Number: PHHY2011US50206

PATIENT
  Sex: Male

DRUGS (2)
  1. AFINITOR [Suspect]
     Dosage: 10 MG, UNK
  2. AFINITOR [Suspect]
     Dosage: 5 MG, UNK

REACTIONS (1)
  - DEATH [None]
